FAERS Safety Report 21622312 (Version 3)
Quarter: 2023Q1

REPORT INFORMATION
  Report Type: Spontaneous
  Country: US (occurrence: US)
  Receive Date: 20221121
  Receipt Date: 20230105
  Transmission Date: 20230418
  Serious: No
  Sender: FDA-Public Use
  Company Number: US-SANOFI-01362282

PATIENT
  Age: 4 Year
  Sex: Male

DRUGS (1)
  1. DUPIXENT [Suspect]
     Active Substance: DUPILUMAB
     Indication: Eczema
     Dosage: UNK
     Dates: start: 20221013

REACTIONS (6)
  - Skin irritation [Unknown]
  - Skin haemorrhage [Unknown]
  - Skin infection [Unknown]
  - Abnormal behaviour [Recovering/Resolving]
  - Insomnia [Unknown]
  - Rash macular [Unknown]

NARRATIVE: CASE EVENT DATE: 20221101
